FAERS Safety Report 5894295-5 (Version None)
Quarter: 2008Q3

REPORT INFORMATION
  Report Type: 
  Country: None (occurrence: None)
  Receive Date: 20080923
  Receipt Date: 20080415
  Transmission Date: 20090109
  Serious: No
  Sender: FDA-Public Use
  Company Number: US-ASTRAZENECA-2008UW07750

PATIENT
  Age: 9 Year
  Sex: Female
  Weight: 24.9 kg

DRUGS (3)
  1. SEROQUEL [Suspect]
     Indication: INSOMNIA
     Route: 048
  2. ADDREAL [Concomitant]
  3. TENEX [Concomitant]

REACTIONS (2)
  - MUSCLE TWITCHING [None]
  - RESTLESSNESS [None]
